FAERS Safety Report 4940820-8 (Version None)
Quarter: 2006Q1

REPORT INFORMATION
  Report Type: 
  Country: None (occurrence: None)
  Receive Date: 20060307
  Receipt Date: 20060222
  Transmission Date: 20060701
  Serious: Yes (Hospitalization)
  Sender: FDA-Public Use
  Company Number: EM2006-0091

PATIENT
  Age: 22 Month
  Sex: Male

DRUGS (4)
  1. TOBI [Suspect]
     Indication: PSEUDOMONAS INFECTION
     Dosage: 300 MG, BID, INHALATION
     Route: 055
     Dates: start: 20050927, end: 20051027
  2. CREON [Concomitant]
  3. CEFUROXIME [Concomitant]
  4. SALBUTAMOL (SALBUTAMOL) [Concomitant]

REACTIONS (1)
  - PSEUDOMONAS INFECTION [None]
